FAERS Safety Report 16959125 (Version 1)
Quarter: 2019Q4

REPORT INFORMATION
  Report Type: Spontaneous
  Country: CA (occurrence: CA)
  Receive Date: 20191024
  Receipt Date: 20191024
  Transmission Date: 20200122
  Serious: Yes (Life-Threatening, Hospitalization, Other)
  Sender: FDA-Public Use
  Company Number: CA-AUROBINDO-AUR-APL-2019-068256

PATIENT
  Age: 62 Year
  Sex: Female
  Weight: 64 kg

DRUGS (2)
  1. RABEPRAZOLE [Concomitant]
     Active Substance: RABEPRAZOLE
     Indication: PRODUCT USED FOR UNKNOWN INDICATION
     Dosage: UNK
     Route: 065
  2. AMOXICILLIN. [Suspect]
     Active Substance: AMOXICILLIN
     Indication: URINARY TRACT INFECTION
     Dosage: 500 MILLIGRAM, 3 TIMES A DAY
     Route: 048

REACTIONS (9)
  - Chills [Recovering/Resolving]
  - Acute kidney injury [Recovering/Resolving]
  - Pollakiuria [Recovering/Resolving]
  - Pyrexia [Recovering/Resolving]
  - Abdominal pain [Recovering/Resolving]
  - Dysuria [Recovering/Resolving]
  - Flank pain [Recovering/Resolving]
  - Nausea [Recovering/Resolving]
  - Tubulointerstitial nephritis [Recovering/Resolving]
